FAERS Safety Report 6624067-5 (Version None)
Quarter: 2010Q1

REPORT INFORMATION
  Report Type: 
  Country: None (occurrence: None)
  Receive Date: 20100310
  Receipt Date: 20090420
  Transmission Date: 20100710
  Serious: Yes (Other)
  Sender: FDA-Public Use
  Company Number: US-ROCHE-628600

PATIENT
  Age: 61 Year
  Sex: Female

DRUGS (9)
  1. TRASTUZUMAB [Suspect]
     Indication: BREAST CANCER
     Dosage: 12 WEEKLY CYCLES
     Route: 065
  2. CAPECITABINE [Suspect]
     Route: 065
  3. NAVELBINE [Concomitant]
     Dosage: 12 WEEKLY CYCLES
  4. ADRIAMYCIN PFS [Concomitant]
     Dosage: 4 CYCLES
  5. CYCLOPHOSPHAMIDE [Concomitant]
     Dosage: 4 CYCLES
  6. PACLITAXEL [Concomitant]
     Dosage: 12 CYCLES
  7. LETROZOLE [Concomitant]
  8. EXEMESTANE [Concomitant]
  9. CYTARABINE [Concomitant]
     Route: 037

REACTIONS (6)
  - ATAXIA [None]
  - CONVULSION [None]
  - GAIT DISTURBANCE [None]
  - HEADACHE [None]
  - METASTASES TO CENTRAL NERVOUS SYSTEM [None]
  - METASTATIC NEOPLASM [None]
